FAERS Safety Report 5612768-7 (Version None)
Quarter: 2008Q1

REPORT INFORMATION
  Report Type: 
  Country: None (occurrence: None)
  Receive Date: 20080204
  Receipt Date: 20080123
  Transmission Date: 20080703
  Serious: Yes (Other)
  Sender: FDA-Public Use
  Company Number: FR-WYE-H02393708

PATIENT
  Age: 75 Year
  Sex: Male

DRUGS (3)
  1. CORDARONE [Suspect]
     Dosage: 200 MG TABLET, DOSE AND FREQUENCY NOT SPECIFIED
     Route: 048
     Dates: end: 20071001
  2. PROSCAR [Concomitant]
     Indication: PROSTATIC DISORDER
     Dosage: DOSE AND FREQUENCY NOT SPECIFIED
     Route: 048
  3. FLECAINIDE ACETATE [Concomitant]
     Dosage: DOSE AND FREQUENCY NOT SPECIFIED
     Route: 065

REACTIONS (3)
  - GAIT DISTURBANCE [None]
  - HYPERTHYROIDISM [None]
  - TEMPORAL ARTERITIS [None]
